FAERS Safety Report 25116175 (Version 3)
Quarter: 2025Q4

REPORT INFORMATION
  Report Type: Spontaneous
  Country: US (occurrence: US)
  Receive Date: 20250325
  Receipt Date: 20251007
  Transmission Date: 20260118
  Serious: No
  Sender: BRISTOL-MYERS SQUIBB COMPANY
  Company Number: US-BRISTOL-MYERS SQUIBB COMPANY-2025-043844

PATIENT
  Age: 60 Year
  Sex: Female

DRUGS (3)
  1. REVLIMID [Suspect]
     Active Substance: LENALIDOMIDE
     Indication: Plasma cell myeloma
  2. REVLIMID [Suspect]
     Active Substance: LENALIDOMIDE
     Dosage: STRENGTH: 20 MG
  3. REVLIMID [Suspect]
     Active Substance: LENALIDOMIDE

REACTIONS (5)
  - Pain in extremity [Unknown]
  - Product dose omission issue [Unknown]
  - Off label use [Unknown]
  - Insurance issue [Unknown]
  - Therapy interrupted [Unknown]

NARRATIVE: CASE EVENT DATE: 20251003
